FAERS Safety Report 10019935 (Version 1)
Quarter: 2014Q1

REPORT INFORMATION
  Report Type: Report from Study
  Country: DE (occurrence: CO)
  Receive Date: 20140318
  Receipt Date: 20140318
  Transmission Date: 20141002
  Serious: Yes (Hospitalization)
  Sender: FDA-Public Use
  Company Number: DE-ACTELION-A-US2014-96311

PATIENT
  Age: 34 Year
  Sex: Female

DRUGS (1)
  1. VENTAVIS [Suspect]
     Indication: PULMONARY HYPERTENSION
     Dosage: UNK, SIX TIMES PER DAY
     Route: 055
     Dates: start: 20131230

REACTIONS (2)
  - Inflammation [Unknown]
  - Nasal discomfort [Unknown]
